FAERS Safety Report 19191703 (Version 1)
Quarter: 2021Q2

REPORT INFORMATION
  Report Type: Spontaneous
  Country: US (occurrence: US)
  Receive Date: 20210428
  Receipt Date: 20210428
  Transmission Date: 20210717
  Serious: No
  Sender: FDA-Public Use
  Company Number: US-BEH-2021130723

PATIENT
  Sex: Male

DRUGS (21)
  1. CYCLOBENZAPRIN [Concomitant]
     Active Substance: CYCLOBENZAPRINE
     Dosage: 5 MILLIGRAM
  2. DOXYCYCLINE. [Concomitant]
     Active Substance: DOXYCYCLINE
     Dosage: 100 MILLIGRAM
  3. VENTOLIN HFA [Concomitant]
     Active Substance: ALBUTEROL SULFATE
  4. HIZENTRA [Suspect]
     Active Substance: HUMAN IMMUNOGLOBULIN G
     Indication: ASTHMA
     Dosage: 12 GRAM, QW
     Route: 058
  5. ESCITALOPRAM [Concomitant]
     Active Substance: ESCITALOPRAM OXALATE
     Dosage: 10 MILLIGRAM
  6. TRAMADOL HCL [Concomitant]
     Active Substance: TRAMADOL HYDROCHLORIDE
     Dosage: 50 MILLIGRAM
  7. FLUTICASONE. [Concomitant]
     Active Substance: FLUTICASONE
  8. AMOXICILLIN. [Concomitant]
     Active Substance: AMOXICILLIN
  9. LEVOCETIRIZIN [Concomitant]
     Active Substance: LEVOCETIRIZINE DIHYDROCHLORIDE
     Dosage: 5 MILLIGRAM
  10. BROMPHENIRAMINE TANNATE [Concomitant]
  11. HYDROCHLOROTH [Concomitant]
     Active Substance: HYDROCHLOROTHIAZIDE
     Dosage: 12.5 MILLIGRAM
  12. ONDANSETRON [Concomitant]
     Active Substance: ONDANSETRON
     Dosage: 4 MILLIGRAM
  13. PANTOPRAZOLE [Concomitant]
     Active Substance: PANTOPRAZOLE
     Dosage: 40 MILLIGRAM
  14. ALBUTEROL [SALBUTAMOL] [Concomitant]
     Active Substance: ALBUTEROL
  15. BACLOFEN. [Concomitant]
     Active Substance: BACLOFEN
     Dosage: 10 MILLIGRAM
  16. CARTIA XT [Concomitant]
     Active Substance: DILTIAZEM HYDROCHLORIDE
     Dosage: 240 MILLIGRAM
  17. FLUCONAZOLE. [Concomitant]
     Active Substance: FLUCONAZOLE
     Dosage: 100 MILLIGRAM
  18. LEVALBUTEROL [LEVOSALBUTAMOL] [Concomitant]
     Active Substance: LEVALBUTEROL
  19. XOPENEX HFA [Concomitant]
     Active Substance: LEVALBUTEROL TARTRATE
  20. ROPINIROLE HYDROCHLORIDE. [Concomitant]
     Active Substance: ROPINIROLE HYDROCHLORIDE
     Dosage: 1 MILLIGRAM
  21. NYSTATIN. [Concomitant]
     Active Substance: NYSTATIN
     Dosage: 100000 INTERNATIONAL UNIT/M

REACTIONS (6)
  - No adverse event [Unknown]
  - Off label use [Unknown]
  - Swelling [Recovered/Resolved]
  - Burning sensation [Recovered/Resolved]
  - Erythema [Recovered/Resolved]
  - Recalled product administered [Recovered/Resolved]
